FAERS Safety Report 6671407-7 (Version None)
Quarter: 2010Q2

REPORT INFORMATION
  Report Type: 
  Country: None (occurrence: None)
  Receive Date: 20100407
  Receipt Date: 20100331
  Transmission Date: 20101027
  Serious: Yes (Other)
  Sender: FDA-Public Use
  Company Number: GB-JNJCH-2010007983

PATIENT
  Sex: Female

DRUGS (1)
  1. NICORETTE INVISI 25MG [Suspect]
     Indication: SMOKING CESSATION THERAPY
     Route: 062

REACTIONS (5)
  - ABDOMINAL DISCOMFORT [None]
  - BLISTER [None]
  - FURUNCLE [None]
  - PRESYNCOPE [None]
  - PRURITUS [None]
